FAERS Safety Report 6287947-9 (Version None)
Quarter: 2009Q3

REPORT INFORMATION
  Report Type: 
  Country: None (occurrence: None)
  Receive Date: 20090729
  Receipt Date: 20090722
  Transmission Date: 20100115
  Serious: Yes (Death)
  Sender: FDA-Public Use
  Company Number: US-BRISTOL-MYERS SQUIBB COMPANY-14716484

PATIENT
  Age: 79 Year
  Sex: Male

DRUGS (3)
  1. SINEMET [Suspect]
     Indication: PARKINSON'S DISEASE
     Route: 048
     Dates: start: 20080124, end: 20080228
  2. PAXIL [Suspect]
     Indication: DEPRESSION
     Route: 048
     Dates: start: 20071122, end: 20080124
  3. PAXIL [Suspect]
     Indication: ANXIETY
     Route: 048
     Dates: start: 20071122, end: 20080124

REACTIONS (1)
  - GUN SHOT WOUND [None]
